FAERS Safety Report 7806479-7 (Version None)
Quarter: 2011Q4

REPORT INFORMATION
  Report Type: 
  Country: None (occurrence: None)
  Receive Date: 20111011
  Receipt Date: 20110928
  Transmission Date: 20120403
  Serious: Yes (Death)
  Sender: FDA-Public Use
  Company Number: US-MYLANLABS-2009S1020744

PATIENT
  Age: 48 Year
  Sex: Female
  Weight: 64 kg

DRUGS (19)
  1. FENTANYL-100 [Suspect]
     Indication: BACK PAIN
     Dosage: CHANGED Q3D
     Route: 062
     Dates: end: 20071208
  2. LISINOPRIL [Concomitant]
  3. FENTANYL-100 [Suspect]
     Route: 062
     Dates: end: 20071208
  4. ZOLPIDEM [Concomitant]
  5. LORTAB [Concomitant]
     Indication: BREAKTHROUGH PAIN
     Dosage: 7.5MG/500MG EVERY 6 HOURS
     Route: 048
  6. FIORICET [Concomitant]
     Indication: MIGRAINE
     Dosage: EVREY 4-6 HOURS
     Route: 048
  7. ADVAIR DISKUS 100/50 [Concomitant]
  8. LORAZEPAM [Concomitant]
     Indication: ANXIETY
  9. PLAVIX [Concomitant]
  10. SOMA [Concomitant]
     Indication: MUSCLE SPASMS
     Dosage: EVERY 8 HOURS FOR MUSCLE SPASMS/BREAKTHROUGH PAIN
     Route: 048
  11. DUONEB [Concomitant]
     Route: 055
  12. SEROQUEL [Concomitant]
  13. FENTANYL-100 [Suspect]
     Indication: PAIN
     Dosage: CHANGED Q3D
     Route: 062
     Dates: end: 20071208
  14. FENTANYL-100 [Suspect]
     Route: 062
     Dates: end: 20071208
  15. ASPIRIN [Concomitant]
  16. PHENERGAN HCL [Concomitant]
     Indication: NAUSEA
     Dosage: EVREY 4-6 HOURS FOR NAUSEA/VOMITING
  17. VYTORIN [Concomitant]
     Dosage: 10/80
  18. RANITIDINE [Concomitant]
  19. PAXIL [Concomitant]

REACTIONS (2)
  - TOXICITY TO VARIOUS AGENTS [None]
  - INTENTIONAL DRUG MISUSE [None]
